FAERS Safety Report 5613387-9 (Version None)
Quarter: 2008Q1

REPORT INFORMATION
  Report Type: 
  Country: None (occurrence: None)
  Receive Date: 20080129
  Receipt Date: 20080122
  Transmission Date: 20080703
  Serious: Yes (Death)
  Sender: FDA-Public Use
  Company Number: IL-JNJFOC-20071203919

PATIENT
  Age: 69 Year
  Sex: Male
  Weight: 84 kg

DRUGS (1)
  1. DECITABINE (DECITABINE) LYOPHILIZED POWDER [Suspect]
     Indication: MYELODYSPLASTIC SYNDROME
     Dosage: 17 MG, 1 IN 1 DAY, INTRAVENOUS
     Route: 042
     Dates: start: 20070807, end: 20070811

REACTIONS (3)
  - ACUTE RESPIRATORY FAILURE [None]
  - INFECTION [None]
  - RENAL FAILURE ACUTE [None]
